FAERS Safety Report 4401630-3 (Version None)
Quarter: 2004Q3

REPORT INFORMATION
  Report Type: 
  Country: None (occurrence: None)
  Receive Date: 20040719
  Receipt Date: 20040609
  Transmission Date: 20050211
  Serious: Yes (Death, Hospitalization)
  Sender: FDA-Public Use
  Company Number: US-ROCHE-370587

PATIENT
  Sex: Male
  Weight: 68 kg

DRUGS (9)
  1. CAPECITABINE [Suspect]
     Indication: OESOPHAGEAL CANCER METASTATIC
     Route: 048
     Dates: start: 20040517, end: 20040521
  2. DOCETAXEL [Suspect]
     Indication: OESOPHAGEAL CANCER METASTATIC
     Route: 065
     Dates: start: 20040517
  3. LOVENOX [Concomitant]
  4. ALDACTONE [Concomitant]
  5. FE-SULPHATE [Concomitant]
  6. LASIX [Concomitant]
  7. COLACE [Concomitant]
  8. SENNA [Concomitant]
  9. DULCOLAX [Concomitant]
     Dates: start: 20040617

REACTIONS (11)
  - CARDIO-RESPIRATORY ARREST [None]
  - CEREBROVASCULAR ACCIDENT [None]
  - COMA [None]
  - DIARRHOEA [None]
  - DYSPNOEA [None]
  - ILEUS [None]
  - INTESTINAL OBSTRUCTION [None]
  - INTESTINAL PERFORATION [None]
  - PLEURAL EFFUSION [None]
  - PLEURAL FIBROSIS [None]
  - SEPSIS [None]
